FAERS Safety Report 10208818 (Version 1)
Quarter: 2014Q2

REPORT INFORMATION
  Report Type: Spontaneous
  Country: US (occurrence: US)
  Receive Date: 20140530
  Receipt Date: 20140530
  Transmission Date: 20141212
  Serious: No
  Sender: FDA-Public Use
  Company Number: US-ASTRAZENECA-2014SE35737

PATIENT
  Sex: Female

DRUGS (3)
  1. TOPROL  XL [Suspect]
     Route: 048
  2. TOPROL  XL [Suspect]
     Dosage: GENERIC
     Route: 048
  3. TOPROL  XL [Suspect]
     Route: 048

REACTIONS (2)
  - Choking [Recovered/Resolved]
  - Vomiting [Recovered/Resolved]
